FAERS Safety Report 8811775 (Version 2)
Quarter: 2012Q4

REPORT INFORMATION
  Report Type: 
  Country: US (occurrence: US)
  Receive Date: 20120927
  Receipt Date: 20121210
  Transmission Date: 20130627
  Serious: Yes (Other)
  Sender: FDA-Public Use
  Company Number: US-BAYER-2012-099275

PATIENT
  Age: 31 Year
  Sex: Female
  Weight: 70.75 kg

DRUGS (5)
  1. MIRENA [Suspect]
     Indication: CONTRACEPTION
     Dosage: 20 mcg/24hr, CONT
     Route: 015
     Dates: start: 20120626, end: 20120824
  2. MIRENA [Suspect]
     Indication: CONTRACEPTION
     Dosage: 20 mcg/24hr, CONT
     Route: 015
     Dates: start: 20120824
  3. ALBUTEROL [Concomitant]
  4. IBUPROFEN [Concomitant]
     Dosage: 800 mg, PRN
  5. FLEXANT [Concomitant]
     Dosage: 10 mg, PRN

REACTIONS (2)
  - Device dislocation [Recovered/Resolved]
  - Discomfort [Recovered/Resolved]
